FAERS Safety Report 5963428-4 (Version None)
Quarter: 2008Q4

REPORT INFORMATION
  Report Type: 
  Country: None (occurrence: None)
  Receive Date: 20081121
  Receipt Date: 20081121
  Transmission Date: 20090506
  Serious: No
  Sender: FDA-Public Use
  Company Number: None

PATIENT
  Age: 62 Year
  Sex: Male
  Weight: 80 kg

DRUGS (9)
  1. ZOSYN [Suspect]
     Indication: PNEUMONIA
     Dosage: 4.5GM IV Q8 HRS
     Route: 042
     Dates: start: 20080731, end: 20080806
  2. MIDODRINE [Concomitant]
  3. PENTOXIFYLLINE [Concomitant]
  4. OCTREOTIDE ACETATE [Concomitant]
  5. LANSOPRAZOLE [Concomitant]
  6. VIT K [Concomitant]
  7. LACTULOSE [Concomitant]
  8. INSULIN [Concomitant]
  9. DOCUSATE [Concomitant]

REACTIONS (3)
  - CLOSTRIDIAL INFECTION [None]
  - DIARRHOEA [None]
  - MELAENA [None]
